FAERS Safety Report 8234267-9 (Version None)
Quarter: 2012Q1

REPORT INFORMATION
  Report Type: 
  Country: None (occurrence: None)
  Receive Date: 20120326
  Receipt Date: 20120316
  Transmission Date: 20120608
  Serious: Yes (Death, Other)
  Sender: FDA-Public Use
  Company Number: CR-PFIZER INC-2012075441

PATIENT
  Age: 82 Year
  Sex: Male

DRUGS (2)
  1. PANTOPRAZOLE [Suspect]
     Dosage: 40 MG, UNK
     Route: 065
  2. DIOVAN HCT [Suspect]
     Dosage: 25/320 MG
     Route: 065

REACTIONS (2)
  - DEATH [None]
  - EMPHYSEMA [None]
